FAERS Safety Report 9206959 (Version 1)
Quarter: 2013Q1

REPORT INFORMATION
  Report Type: Spontaneous
  Country: US (occurrence: None)
  Receive Date: 20120713
  Receipt Date: 20120713
  Transmission Date: 20140127
  Serious: No
  Sender: FDA-Public Use
  Company Number: PHEH2012US010201

PATIENT
  Sex: Male
  Weight: 37 kg

DRUGS (1)
  1. ILARIS [Suspect]
     Dosage: Q8 WEEKS
     Route: 058

REACTIONS (3)
  - Arthralgia [None]
  - Abdominal pain [None]
  - Sleep disorder [None]
